FAERS Safety Report 18398123 (Version 2)
Quarter: 2020Q4

REPORT INFORMATION
  Report Type: Spontaneous
  Country: FR (occurrence: FR)
  Receive Date: 20201019
  Receipt Date: 20201127
  Transmission Date: 20210114
  Serious: Yes (Hospitalization, Other)
  Sender: FDA-Public Use
  Company Number: FR-ROCHE-2696674

PATIENT
  Age: 75 Year
  Sex: Female

DRUGS (1)
  1. LUCENTIS [Suspect]
     Active Substance: RANIBIZUMAB
     Indication: AGE-RELATED MACULAR DEGENERATION
     Dosage: UNK (1 INJECTION, MONTHLY)
     Route: 065

REACTIONS (5)
  - Foreign body in eye [Unknown]
  - Delirium [Unknown]
  - Corneal oedema [Unknown]
  - Eye inflammation [Unknown]
  - Hallucination, visual [Unknown]
